FAERS Safety Report 4480301-1 (Version None)
Quarter: 2004Q3

REPORT INFORMATION
  Report Type: 
  Country: None (occurrence: None)
  Receive Date: 20040923
  Receipt Date: 20040809
  Transmission Date: 20050211
  Serious: No
  Sender: FDA-Public Use
  Company Number: USA040155676

PATIENT
  Age: 76 Year
  Sex: Female

DRUGS (2)
  1. FORTEO [Suspect]
     Indication: OSTEOPOROSIS
     Dosage: 20 UG DAY
     Dates: start: 20031121
  2. BEXTRA [Concomitant]

REACTIONS (5)
  - BACK PAIN [None]
  - COUGH [None]
  - INFECTION [None]
  - LARYNGITIS [None]
  - PAIN IN EXTREMITY [None]
